FAERS Safety Report 8339547-4 (Version None)
Quarter: 2012Q2

REPORT INFORMATION
  Report Type: 
  Country: None (occurrence: None)
  Receive Date: 20120507
  Receipt Date: 20120501
  Transmission Date: 20120825
  Serious: Yes (Hospitalization)
  Sender: FDA-Public Use
  Company Number: US-B.I. PHARMACEUTICALS,INC./RIDGEFIELD-2012-BP-09898BP

PATIENT
  Sex: Female

DRUGS (12)
  1. FISH OIL [Concomitant]
     Indication: SUPPLEMENTATION THERAPY
     Dosage: 12 MG
     Route: 048
  2. NORTRIPTYLINE HCL [Concomitant]
     Indication: FIBROMYALGIA
  3. SERTRALINE HYDROCHLORIDE [Concomitant]
     Indication: DEPRESSION
     Dosage: 100 MG
     Route: 048
  4. SPIRIVA [Suspect]
     Indication: CHRONIC OBSTRUCTIVE PULMONARY DISEASE
     Dosage: 18 MCG
     Route: 055
     Dates: start: 20070101
  5. LORAZEPAM [Concomitant]
     Indication: ANXIETY
     Dosage: 1 MG
     Route: 048
  6. CRESTOR [Concomitant]
     Indication: BLOOD CHOLESTEROL INCREASED
     Dosage: 10 MG
     Route: 048
  7. NORTRIPTYLINE HCL [Concomitant]
     Indication: DEPRESSION
     Dosage: 100 MG
     Route: 048
  8. ASPIRIN [Concomitant]
     Indication: PROPHYLAXIS
     Dosage: 325 MG
     Route: 048
  9. CALCIUM WITH MAGNESIUM + ZINC [Concomitant]
     Indication: SUPPLEMENTATION THERAPY
     Route: 048
  10. CYCLOBENZAPRINE [Concomitant]
     Indication: MUSCLE SPASMS
     Dosage: 20 MG
     Route: 048
  11. STRESS B COMPLEX WITH VITAMIN C + ZINC [Concomitant]
     Indication: SUPPLEMENTATION THERAPY
     Route: 048
  12. VITAMIN D [Concomitant]
     Indication: SUPPLEMENTATION THERAPY
     Dosage: 1000 U
     Route: 048

REACTIONS (1)
  - CEREBROVASCULAR ACCIDENT [None]
